FAERS Safety Report 7552761-0 (Version None)
Quarter: 2011Q2

REPORT INFORMATION
  Report Type: 
  Country: None (occurrence: None)
  Receive Date: 20110616
  Receipt Date: 20110613
  Transmission Date: 20111010
  Serious: Yes (Other)
  Sender: FDA-Public Use
  Company Number: US-UCBSA-035240

PATIENT
  Age: 23 Year
  Sex: Female
  Weight: 41 kg

DRUGS (9)
  1. KEPPRA [Suspect]
     Dosage: STARTED MORE THAN 5 YEARS AGO
     Route: 048
     Dates: start: 20060101
  2. MUCOMYST [Concomitant]
     Dosage: 10% PER ML
     Route: 048
     Dates: start: 20110420
  3. PHENOBARBITAL TAB [Concomitant]
     Route: 048
  4. KEPPRA [Suspect]
     Indication: CONVULSION
     Dosage: STARTED MORE THAN 5 YEARS AGO
     Route: 048
     Dates: start: 20060101
  5. DEPAKOTE [Concomitant]
     Route: 048
  6. VIMPAT [Suspect]
     Indication: CONVULSION
     Route: 048
     Dates: start: 20110311
  7. TOPIRAMATE [Concomitant]
     Route: 048
  8. NEXIUM [Concomitant]
     Route: 048
  9. SCOPLOLAMINE [Concomitant]
     Dates: start: 20110412

REACTIONS (1)
  - PNEUMONIA ASPIRATION [None]
